FAERS Safety Report 10224707 (Version 1)
Quarter: 2014Q2

REPORT INFORMATION
  Report Type: Spontaneous
  Country: NL (occurrence: NL)
  Receive Date: 20140609
  Receipt Date: 20140609
  Transmission Date: 20141212
  Serious: Yes (Death)
  Sender: FDA-Public Use
  Company Number: NL-AMGEN INC.-NLDSP2014041412

PATIENT
  Age: 81 Year
  Sex: Male

DRUGS (2)
  1. XGEVA [Suspect]
     Indication: METASTASES TO BONE
     Dosage: 120 MG, Q4WK
     Route: 058
     Dates: start: 20120315, end: 20140602
  2. XGEVA [Suspect]
     Indication: PROPHYLAXIS

REACTIONS (1)
  - Death [Fatal]
